FAERS Safety Report 4267092-4 (Version None)
Quarter: 2004Q1

REPORT INFORMATION
  Report Type: 
  Country: None (occurrence: None)
  Receive Date: 20040108
  Receipt Date: 20040105
  Transmission Date: 20041129
  Serious: Yes (Hospitalization)
  Sender: FDA-Public Use
  Company Number: PHBS2004CH00457

PATIENT
  Age: 76 Year
  Sex: Male

DRUGS (9)
  1. VOLTAREN [Suspect]
     Indication: BACK PAIN
     Dosage: 100 MG/DAY
     Route: 065
     Dates: start: 20031209
  2. GLYBURIDE [Suspect]
     Indication: DIABETES MELLITUS NON-INSULIN-DEPENDENT
     Dosage: 15 MG/DAY
     Route: 065
     Dates: end: 20031210
  3. AVANDIA [Suspect]
     Indication: DIABETES MELLITUS NON-INSULIN-DEPENDENT
     Dosage: 4 MG/DAY
     Route: 065
     Dates: end: 20031210
  4. CARDIOASPIRIN [Suspect]
     Indication: THROMBOSIS PROPHYLAXIS
     Dosage: 100 MG/DAY
     Route: 065
  5. TILUR [Concomitant]
     Dosage: 90 MG/DAY
     Route: 065
  6. XATRAL [Concomitant]
     Route: 065
  7. SYMFONA N [Concomitant]
     Route: 065
  8. ATORVASTATIN [Concomitant]
     Dosage: 20 MG/DAY
     Route: 065
  9. TRAMADOL HCL [Concomitant]
     Dosage: 15 DROPS/DAY
     Route: 065

REACTIONS (5)
  - ABNORMAL BEHAVIOUR [None]
  - DEPRESSED LEVEL OF CONSCIOUSNESS [None]
  - DRUG INTERACTION [None]
  - HYPOGLYCAEMIA [None]
  - MALAISE [None]
